FAERS Safety Report 17582304 (Version 3)
Quarter: 2020Q1

REPORT INFORMATION
  Report Type: Spontaneous
  Country: US (occurrence: US)
  Receive Date: 20200325
  Receipt Date: 20200331
  Transmission Date: 20200409
  Serious: Yes (Hospitalization, Other)
  Sender: FDA-Public Use
  Company Number: US-SA-2020SA069280

PATIENT
  Age: 25 Year
  Sex: Female

DRUGS (1)
  1. DIPHENHYDRAMINE/PARACETAMOL [Suspect]
     Active Substance: ACETAMINOPHEN\DIPHENHYDRAMINE
     Dosage: UNK

REACTIONS (5)
  - Toxicity to various agents [Recovered/Resolved]
  - Overdose [Recovered/Resolved]
  - Somnolence [Recovered/Resolved]
  - Slow response to stimuli [Recovered/Resolved]
  - Lactic acidosis [Recovered/Resolved]
